FAERS Safety Report 7513397-0 (Version None)
Quarter: 2011Q2

REPORT INFORMATION
  Report Type: 
  Country: None (occurrence: None)
  Receive Date: 20110531
  Receipt Date: 20110524
  Transmission Date: 20111010
  Serious: Yes (Hospitalization, Other)
  Sender: FDA-Public Use
  Company Number: FR-PFIZER INC-2011086212

PATIENT
  Age: 58 Year
  Sex: Female

DRUGS (2)
  1. IBUPROFEN (ADVIL) [Suspect]
     Indication: TONSILLITIS
     Dosage: 400 MG, 3X/DAY
     Route: 048
     Dates: start: 20110324, end: 20110325
  2. AMOXICILLIN TRIHYDRATE [Suspect]
     Indication: TONSILLITIS
     Dosage: 1 G, 2X/DAY
     Route: 048
     Dates: start: 20110324, end: 20110325

REACTIONS (3)
  - TRANSAMINASES INCREASED [None]
  - CYTOLYTIC HEPATITIS [None]
  - ABDOMINAL PAIN UPPER [None]
